FAERS Safety Report 13484367 (Version 2)
Quarter: 2017Q2

REPORT INFORMATION
  Report Type: Spontaneous
  Country: IN (occurrence: IN)
  Receive Date: 20170425
  Receipt Date: 20170504
  Transmission Date: 20170830
  Serious: Yes (Other)
  Sender: FDA-Public Use
  Company Number: IN-CONCORDIA PHARMACEUTICALS INC.-GSH201704-002590

PATIENT
  Age: 19 Year
  Sex: Female

DRUGS (1)
  1. HYDROXYCHLOROQUINE [Suspect]
     Active Substance: HYDROXYCHLOROQUINE
     Indication: SYSTEMIC LUPUS ERYTHEMATOSUS
     Route: 065

REACTIONS (12)
  - Pyrexia [Recovered/Resolved]
  - Blood pressure decreased [Recovered/Resolved]
  - Heart rate increased [Recovered/Resolved]
  - Red blood cell sedimentation rate increased [Recovered/Resolved]
  - Dyspnoea [Recovered/Resolved]
  - Tuberculosis [Recovered/Resolved]
  - Cardiomegaly [Recovered/Resolved]
  - Heart sounds abnormal [Recovered/Resolved]
  - Pericardial effusion [Recovered/Resolved]
  - Respiratory rate increased [Recovered/Resolved]
  - Rales [Recovered/Resolved]
  - Venous pressure jugular increased [Recovered/Resolved]
